FAERS Safety Report 9744101 (Version 2)
Quarter: 2014Q1

REPORT INFORMATION
  Report Type: Report from Study
  Country: US (occurrence: US)
  Receive Date: 20131210
  Receipt Date: 20140325
  Transmission Date: 20141002
  Serious: Yes (Hospitalization, Other)
  Sender: FDA-Public Use
  Company Number: US-BAYER-2013-148633

PATIENT
  Age: 68 Year
  Sex: Female
  Weight: 66.67 kg

DRUGS (9)
  1. BETASERON [Suspect]
     Indication: RELAPSING-REMITTING MULTIPLE SCLEROSIS
     Dosage: UNK
     Dates: start: 20070307, end: 20080224
  2. BETASERON [Suspect]
     Indication: RELAPSING-REMITTING MULTIPLE SCLEROSIS
     Dosage: UNK
     Dates: start: 20080227, end: 20090316
  3. BETASERON [Suspect]
     Indication: RELAPSING-REMITTING MULTIPLE SCLEROSIS
     Dosage: UNK
     Dates: start: 20090323, end: 20131118
  4. SERTRALINE [Concomitant]
     Indication: DEPRESSION
     Dosage: 100 MG, ONE AND HALF, QD
  5. LISINOPRIL [Concomitant]
     Indication: BLOOD PRESSURE ABNORMAL
     Dosage: 12.5 MG, BID
  6. TRAMADOL [Concomitant]
     Indication: PAIN
     Dosage: 1 TABLET, EVERY 4 TO 6 HRS
  7. PHENAZOPYRIDINE HYDROCHLORIDE [Concomitant]
     Dosage: 200 MG, TID
     Route: 048
  8. CIPRO [Concomitant]
     Dosage: 250 MG, BID
     Route: 048
  9. PREDNISONE [Concomitant]
     Dosage: 5 MG, UNK

REACTIONS (9)
  - Faecal incontinence [Not Recovered/Not Resolved]
  - Local swelling [Recovered/Resolved]
  - Rash [None]
  - Dry skin [None]
  - Contusion [Recovered/Resolved]
  - Urinary incontinence [Recovered/Resolved]
  - Abdominal pain upper [Recovered/Resolved]
  - Urinary tract infection [None]
  - Swelling face [Recovering/Resolving]
